FAERS Safety Report 19259358 (Version 3)
Quarter: 2021Q2

REPORT INFORMATION
  Report Type: Spontaneous
  Country: JP (occurrence: JP)
  Receive Date: 20210514
  Receipt Date: 20210611
  Transmission Date: 20210717
  Serious: Yes (Hospitalization)
  Sender: FDA-Public Use
  Company Number: JP-JNJFOC-20210523610

PATIENT
  Age: 79 Year
  Sex: Female
  Weight: 43.2 kg

DRUGS (14)
  1. REMINYL [Suspect]
     Active Substance: GALANTAMINE
     Indication: DEMENTIA ALZHEIMER^S TYPE
     Dosage: IN THE MORNING AND EVENING
     Route: 048
     Dates: start: 20210419, end: 20210507
  2. BLADDERON [Concomitant]
     Active Substance: FLAVOXATE
     Route: 065
  3. HOCHUEKKITO [ANGELICA ACUTILOBA ROOT;ASTRAGALUS SPP. ROOT;ATRACTYLODES [Concomitant]
     Active Substance: HERBALS
     Dosage: 3 PACKS
     Route: 065
  4. MINODRONIC ACID HYDRATE [Concomitant]
     Active Substance: MINODRONIC ACID
     Route: 065
  5. ABILIFY [Concomitant]
     Active Substance: ARIPIPRAZOLE
     Route: 065
  6. EVISTA [Concomitant]
     Active Substance: RALOXIFENE HYDROCHLORIDE
     Route: 065
  7. BIO?THREE [Concomitant]
     Active Substance: HERBALS
     Route: 048
  8. NEXIUM [Concomitant]
     Active Substance: ESOMEPRAZOLE MAGNESIUM
     Route: 065
  9. EXCELASE [Concomitant]
     Active Substance: PANCRELIPASE
     Route: 048
  10. DIFENIDOL HYDROCHLORIDE [Concomitant]
     Active Substance: DIPHENIDOL HYDROCHLORIDE
     Route: 065
  11. MECOBALAMIN [Concomitant]
     Active Substance: METHYLCOBALAMIN
     Route: 065
  12. BETANIS [Concomitant]
     Active Substance: MIRABEGRON
     Route: 065
  13. POLAPREZINC [Concomitant]
     Active Substance: POLAPREZINC
     Route: 048
  14. ADETPHOS [Concomitant]
     Active Substance: ADENOSINE TRIPHOSPHATE
     Route: 065

REACTIONS (8)
  - Abulia [Unknown]
  - Persecutory delusion [Unknown]
  - Fall [Unknown]
  - Anxiety [Unknown]
  - Altered state of consciousness [Recovered/Resolved]
  - Nausea [Unknown]
  - Irritability [Unknown]
  - Mental disorder [Recovered/Resolved]

NARRATIVE: CASE EVENT DATE: 202104
